FAERS Safety Report 5935691-7 (Version None)
Quarter: 2008Q4

REPORT INFORMATION
  Report Type: 
  Country: None (occurrence: None)
  Receive Date: 20081030
  Receipt Date: 20081020
  Transmission Date: 20090506
  Serious: Yes (Hospitalization)
  Sender: FDA-Public Use
  Company Number: CN-WATSON-2008-06318

PATIENT
  Age: 59 Year
  Sex: Female
  Weight: 54 kg

DRUGS (2)
  1. ALTOPREV EXTENDED RELEASE (WATSON LABORATORIES) [Suspect]
     Indication: HYPERCHOLESTEROLAEMIA
     Dosage: 40 MG, DAILY
  2. DANAZOL [Suspect]
     Indication: THROMBOCYTOPENIA
     Dosage: 600 MG, DAILY

REACTIONS (3)
  - DRUG INTERACTION [None]
  - PANCREATITIS [None]
  - RHABDOMYOLYSIS [None]
